FAERS Safety Report 12845120 (Version 2)
Quarter: 2016Q4

REPORT INFORMATION
  Report Type: Report from Study
  Country: US (occurrence: US)
  Receive Date: 20161013
  Receipt Date: 20161118
  Transmission Date: 20170207
  Serious: Yes (Hospitalization)
  Sender: FDA-Public Use
  Company Number: US-B.I. PHARMACEUTICALS,INC./RIDGEFIELD-2015-BI-51995BP

PATIENT
  Sex: Male

DRUGS (2)
  1. SILDENAFIL CITRATE. [Concomitant]
     Active Substance: SILDENAFIL CITRATE
     Indication: PRODUCT USED FOR UNKNOWN INDICATION
  2. OFEV [Suspect]
     Active Substance: NINTEDANIB
     Indication: IDIOPATHIC PULMONARY FIBROSIS
     Route: 048
     Dates: start: 20150803

REACTIONS (11)
  - Diarrhoea [Unknown]
  - Lung transplant [Unknown]
  - Infection [Unknown]
  - Dyspnoea [Unknown]
  - Hospitalisation [Unknown]
  - Fluid retention [Unknown]
  - Rash [Unknown]
  - Local swelling [Unknown]
  - Headache [Unknown]
  - Productive cough [Unknown]
  - Cough [Unknown]
